FAERS Safety Report 5128998-7 (Version None)
Quarter: 2006Q4

REPORT INFORMATION
  Report Type: 
  Country: None (occurrence: None)
  Receive Date: 20061016
  Receipt Date: 20061016
  Transmission Date: 20070319
  Serious: Yes (Other)
  Sender: FDA-Public Use
  Company Number: None

PATIENT
  Sex: Male
  Weight: 50.8029 kg

DRUGS (1)
  1. PROVIGIL [Suspect]
     Indication: SLEEP DISORDER
     Dosage: 100MG ONCE PER DAY PO
     Route: 048
     Dates: start: 20061007, end: 20061011

REACTIONS (11)
  - ABNORMAL BEHAVIOUR [None]
  - AGGRESSION [None]
  - ANGER [None]
  - ANXIETY [None]
  - DIZZINESS [None]
  - EDUCATIONAL PROBLEM [None]
  - INSOMNIA [None]
  - MENTAL DISORDER [None]
  - MOOD ALTERED [None]
  - OPPOSITIONAL DEFIANT DISORDER [None]
  - THINKING ABNORMAL [None]
